FAERS Safety Report 8833746 (Version 1)
Quarter: 2012Q4

REPORT INFORMATION
  Report Type: 
  Country: US (occurrence: US)
  Receive Date: 20121010
  Receipt Date: 20121010
  Transmission Date: 20130627
  Serious: No
  Sender: FDA-Public Use
  Company Number: US-BAYER-2012-104758

PATIENT
  Age: 73 Year
  Sex: Male
  Weight: 80.73 kg

DRUGS (1)
  1. ALEVE CAPLET/TABLET,MIDOL EXTENDED RELIEF CAPLET [Suspect]
     Indication: ARTHRITIS
     Dosage: 2 DF, Once Daily
     Route: 048
     Dates: start: 201011

REACTIONS (1)
  - No adverse event [None]
